FAERS Safety Report 4278729-8 (Version None)
Quarter: 2004Q1

REPORT INFORMATION
  Report Type: 
  Country: None (occurrence: None)
  Receive Date: 20040102
  Receipt Date: 20031106
  Transmission Date: 20041129
  Serious: No
  Sender: FDA-Public Use
  Company Number: BLOC000386

PATIENT
  Sex: Male

DRUGS (1)
  1. MYOBLOC [Suspect]
     Indication: BACK PAIN
     Dosage: 5,000 U INTRAMUSCULAR
     Route: 030
     Dates: start: 20010101, end: 20010101

REACTIONS (2)
  - DRY MOUTH [None]
  - INFLUENZA LIKE ILLNESS [None]
